FAERS Safety Report 25139816 (Version 2)
Quarter: 2025Q3

REPORT INFORMATION
  Report Type: Spontaneous
  Country: EU (occurrence: EU)
  Receive Date: 20250331
  Receipt Date: 20250809
  Transmission Date: 20251021
  Serious: Yes (Other)
  Sender: ALEXION PHARMACEUTICALS
  Company Number: 2025003927-000

PATIENT
  Sex: Female

DRUGS (4)
  1. QUETIAPINE FUMARATE [Suspect]
     Active Substance: QUETIAPINE FUMARATE
     Dates: start: 20250131, end: 20250131
  2. CLONAZEPAM [Suspect]
     Active Substance: CLONAZEPAM
     Dates: start: 20250131, end: 20250131
  3. LAMOTRIGINE [Suspect]
     Active Substance: LAMOTRIGINE
     Dates: start: 20250131, end: 20250131
  4. BUPROPION [Suspect]
     Active Substance: BUPROPION
     Dates: start: 20250131, end: 20250131

REACTIONS (2)
  - Loss of consciousness [Unknown]
  - Accidental exposure to product [Unknown]
